FAERS Safety Report 9183255 (Version 1)
Quarter: 2012Q4

REPORT INFORMATION
  Report Type: 
  Country: BR (occurrence: BR)
  Receive Date: 20121030
  Receipt Date: 20121030
  Transmission Date: 20130627
  Serious: Yes (Other)
  Sender: FDA-Public Use
  Company Number: PHHY2012BR097228

PATIENT
  Age: 69 None
  Sex: Female
  Weight: 92 kg

DRUGS (2)
  1. RASILEZ [Suspect]
     Indication: HYPERTENSION
     Dosage: 300 mg, daily
     Route: 048
     Dates: end: 20121026
  2. PRAENE [Concomitant]
     Indication: DIABETES MELLITUS
     Dosage: 5 mg, QD
     Route: 048

REACTIONS (3)
  - Hypertension [Recovered/Resolved]
  - Hyperglycaemia [Recovered/Resolved]
  - Headache [Recovered/Resolved]
